FAERS Safety Report 9349551 (Version 2)
Quarter: 2013Q2

REPORT INFORMATION
  Report Type: Spontaneous
  Country: FR (occurrence: FR)
  Receive Date: 20130614
  Receipt Date: 20130620
  Transmission Date: 20140414
  Serious: Yes (Hospitalization)
  Sender: FDA-Public Use
  Company Number: FR-GLAXOSMITHKLINE-B0897696A

PATIENT
  Age: 56 Year
  Sex: Male

DRUGS (3)
  1. ZINNAT [Suspect]
     Indication: HELICOBACTER INFECTION
     Route: 048
     Dates: start: 20121214, end: 20121215
  2. PLAQUENIL [Suspect]
     Indication: PRODUCT USED FOR UNKNOWN INDICATION
     Route: 048
     Dates: start: 20121205, end: 20121220
  3. METRONIDAZOLE [Concomitant]
     Indication: TOOTH ABSCESS
     Dosage: 1.5G PER DAY
     Dates: start: 20121111

REACTIONS (6)
  - Toxic skin eruption [Recovering/Resolving]
  - Rash maculo-papular [Unknown]
  - Skin exfoliation [Unknown]
  - General physical health deterioration [Recovering/Resolving]
  - Pyrexia [Recovering/Resolving]
  - Drug dispensing error [Unknown]
